FAERS Safety Report 10191234 (Version 1)
Quarter: 2014Q2

REPORT INFORMATION
  Report Type: Spontaneous
  Country: US (occurrence: None)
  Receive Date: 20140521
  Receipt Date: 20140521
  Transmission Date: 20141212
  Serious: Yes (Death)
  Sender: FDA-Public Use
  Company Number: INS201405-000075

PATIENT
  Sex: Male

DRUGS (1)
  1. SUBSYS SUBLINGUAL SPRAY (FENTANYL) [Suspect]
     Dates: start: 201307

REACTIONS (1)
  - Death [None]
